FAERS Safety Report 5290207-6 (Version None)
Quarter: 2007Q2

REPORT INFORMATION
  Report Type: 
  Country: None (occurrence: None)
  Receive Date: 20070402
  Receipt Date: 20070322
  Transmission Date: 20071010
  Serious: Yes (Hospitalization)
  Sender: FDA-Public Use
  Company Number: 2007SP004218

PATIENT
  Age: 46 Year
  Sex: Female

DRUGS (3)
  1. PEG-INTRON [Suspect]
     Indication: HEPATITIS C
     Dosage: SC
     Route: 058
     Dates: start: 20061227
  2. RIBAVIRIN [Suspect]
     Indication: HEPATITIS C
     Dosage: PO
     Route: 048
     Dates: start: 20061227
  3. LEVOXYL [Concomitant]

REACTIONS (6)
  - ANAEMIA [None]
  - BLOOD URIC ACID INCREASED [None]
  - DEHYDRATION [None]
  - DRY MOUTH [None]
  - PRODUCTIVE COUGH [None]
  - VOMITING [None]
